FAERS Safety Report 7675751-6 (Version None)
Quarter: 2011Q3

REPORT INFORMATION
  Report Type: 
  Country: None (occurrence: None)
  Receive Date: 20110810
  Receipt Date: 20110511
  Transmission Date: 20111222
  Serious: No
  Sender: FDA-Public Use
  Company Number: US-TYCO HEALTHCARE/MALLINCKRODT-T201100974

PATIENT
  Sex: Male
  Weight: 72.562 kg

DRUGS (2)
  1. PENNSAID [Suspect]
     Indication: EPICONDYLITIS
     Dosage: 10 GTT, BILATERAL ELBOWS, BID
     Route: 061
     Dates: start: 20110401
  2. NATURAL TEARS [Suspect]
     Indication: RETINAL OPERATION
     Dosage: 4 GTT, UNK, RIGHT EYE
     Route: 047
     Dates: start: 20110401

REACTIONS (1)
  - WRONG DRUG ADMINISTERED [None]
